FAERS Safety Report 4279372-7 (Version None)
Quarter: 2004Q1

REPORT INFORMATION
  Report Type: 
  Country: None (occurrence: None)
  Receive Date: 20040126
  Receipt Date: 20040126
  Transmission Date: 20041129
  Serious: Yes (Life-Threatening)
  Sender: FDA-Public Use
  Company Number: None

PATIENT
  Age: 74 Year
  Sex: Male

DRUGS (3)
  1. LORAZEPAM [Suspect]
     Indication: AGITATION
     Dosage: 1MG ONCE INTRAVENOUS
     Route: 042
     Dates: start: 20031117, end: 20031117
  2. OXYCODONE AND ACETAMINOPHEN [Suspect]
     Indication: PAIN
     Dosage: ONE TAB ONCE ORAL
     Route: 048
     Dates: start: 20031116, end: 20031116
  3. CYCLOBENZAPRINE [Concomitant]

REACTIONS (7)
  - AGITATION [None]
  - APNOEA [None]
  - ASTHENIA [None]
  - COMA [None]
  - CONFUSIONAL STATE [None]
  - HYPOTENSION [None]
  - PULSE ABSENT [None]
